FAERS Safety Report 20788405 (Version 1)
Quarter: 2022Q2

REPORT INFORMATION
  Report Type: Spontaneous
  Country: US (occurrence: US)
  Receive Date: 20220505
  Receipt Date: 20220505
  Transmission Date: 20220721
  Serious: Yes (Other)
  Sender: FDA-Public Use
  Company Number: US-BRISTOL-MYERS SQUIBB COMPANY-2022-025463

PATIENT
  Age: 59 Year
  Sex: Male
  Weight: 73.4 kg

DRUGS (1)
  1. REVLIMID [Suspect]
     Active Substance: LENALIDOMIDE
     Indication: Product used for unknown indication
     Dosage: 28/BTL ?FREQUENCY: DAILY 2 WEEKS, 1 WEEK OFF
     Route: 048
     Dates: start: 20150804

REACTIONS (2)
  - Deep vein thrombosis [Unknown]
  - Intentional product use issue [Unknown]

NARRATIVE: CASE EVENT DATE: 20170801
